FAERS Safety Report 6836269-3 (Version None)
Quarter: 2010Q3

REPORT INFORMATION
  Report Type: 
  Country: None (occurrence: None)
  Receive Date: 20100713
  Receipt Date: 20100406
  Transmission Date: 20110219
  Serious: No
  Sender: FDA-Public Use
  Company Number: US-TYCO HEALTHCARE/MALLINCKRODT-T201001028

PATIENT
  Sex: Male

DRUGS (1)
  1. OXYCODONE HCL [Suspect]
     Dosage: UNK

REACTIONS (2)
  - DRUG SCREEN NEGATIVE [None]
  - DRUG SCREEN POSITIVE [None]
